FAERS Safety Report 25643689 (Version 1)
Quarter: 2025Q3

REPORT INFORMATION
  Report Type: Report from Study
  Country: US (occurrence: US)
  Receive Date: 20250805
  Receipt Date: 20250805
  Transmission Date: 20251021
  Serious: No
  Sender: SUNOVION
  Company Number: US-SMPA-2025SPA009840

PATIENT
  Age: 68 Year
  Sex: Male

DRUGS (6)
  1. ORGOVYX [Suspect]
     Active Substance: RELUGOLIX
     Indication: Prostate cancer
     Route: 048
  2. ABIRATERONE [Concomitant]
     Active Substance: ABIRATERONE
  3. BENADRYL [Concomitant]
     Active Substance: DIPHENHYDRAMINE HYDROCHLORIDE
  4. ELIGARD [Concomitant]
     Active Substance: LEUPROLIDE ACETATE
  5. PREDNISONE [Concomitant]
     Active Substance: PREDNISONE
  6. XGEVA [Concomitant]
     Active Substance: DENOSUMAB

REACTIONS (1)
  - Fatigue [Unknown]
